FAERS Safety Report 23571827 (Version 1)
Quarter: 2024Q1

REPORT INFORMATION
  Report Type: Spontaneous
  Country: US (occurrence: None)
  Receive Date: 20240227
  Receipt Date: 20240227
  Transmission Date: 20240410
  Serious: Yes (Hospitalization)
  Sender: FDA-Public Use
  Company Number: None

PATIENT
  Age: 24 Year
  Weight: 42.75 kg

DRUGS (6)
  1. GAMUNEX-C [Suspect]
     Active Substance: HUMAN IMMUNOGLOBULIN G
     Indication: Dermatomyositis
     Dosage: OTHER FREQUENCY : EVERY 2 WEEKS;?
     Route: 042
  2. GAMUNEX-C [Suspect]
     Active Substance: HUMAN IMMUNOGLOBULIN G
     Indication: Myopathy
  3. GAMUNEX-C [Suspect]
     Active Substance: HUMAN IMMUNOGLOBULIN G
     Indication: Dermatomyositis
     Dosage: OTHER FREQUENCY : EVERY 2 WEEKS;?
     Route: 042
  4. Gamunex-C 10% [Concomitant]
  5. Gamunex-C 10% [Concomitant]
  6. Gamunex-C 10% [Concomitant]

REACTIONS (3)
  - Nausea [None]
  - Dizziness [None]
  - Headache [None]

NARRATIVE: CASE EVENT DATE: 20240226
